FAERS Safety Report 18954813 (Version 2)
Quarter: 2021Q1

REPORT INFORMATION
  Report Type: Spontaneous
  Country: US (occurrence: US)
  Receive Date: 20210301
  Receipt Date: 20210303
  Transmission Date: 20210420
  Serious: Yes (Hospitalization)
  Sender: FDA-Public Use
  Company Number: US-PFIZER INC-2004083839

PATIENT
  Age: 18 Year
  Sex: Male

DRUGS (1)
  1. DILANTIN [Suspect]
     Active Substance: PHENYTOIN
     Indication: SEIZURE
     Dosage: 200 MG, 2X/DAY

REACTIONS (3)
  - Tic [Recovered/Resolved]
  - Mutism [Recovered/Resolved]
  - Toxicity to various agents [Recovered/Resolved]
